FAERS Safety Report 14648778 (Version 1)
Quarter: 2018Q1

REPORT INFORMATION
  Report Type: Spontaneous
  Country: GB (occurrence: GB)
  Receive Date: 20180316
  Receipt Date: 20180316
  Transmission Date: 20180509
  Serious: Yes (Hospitalization)
  Sender: FDA-Public Use
  Company Number: PHHY2018GB043588

PATIENT
  Age: 83 Year
  Sex: Female

DRUGS (2)
  1. LABETALOL [Suspect]
     Active Substance: LABETALOL\LABETALOL HYDROCHLORIDE
     Indication: PRODUCT USED FOR UNKNOWN INDICATION
     Dosage: 120 UNK, UNK, 120 ML/HR
     Route: 065
  2. GLUCOSE [Suspect]
     Active Substance: DEXTROSE
     Indication: PRODUCT USED FOR UNKNOWN INDICATION
     Dosage: 120 UNK, UNK, ML/HR
     Route: 065

REACTIONS (2)
  - Blood sodium decreased [Unknown]
  - Coma scale abnormal [Unknown]

NARRATIVE: CASE EVENT DATE: 20171116
